FAERS Safety Report 19707671 (Version 9)
Quarter: 2024Q3

REPORT INFORMATION
  Report Type: Spontaneous
  Country: US (occurrence: US)
  Receive Date: 20210817
  Receipt Date: 20240711
  Transmission Date: 20241017
  Serious: Yes (Disabling, Other)
  Sender: ORGANON
  Company Number: US-ORGANON-O2108USA001329

PATIENT
  Sex: Male
  Weight: 31 kg

DRUGS (4)
  1. SINGULAIR [Suspect]
     Active Substance: MONTELUKAST SODIUM
     Indication: Sinus disorder
     Dosage: 4 MILLIGRAM
     Route: 048
     Dates: start: 2009, end: 20170203
  2. SINGULAIR [Suspect]
     Active Substance: MONTELUKAST SODIUM
     Dosage: ONCE DAILY IN THE EVENING
     Route: 048
  3. MONTELUKAST [Suspect]
     Active Substance: MONTELUKAST SODIUM
     Dosage: UNK
     Dates: start: 2012, end: 2019
  4. ALBUTEROL SULFATE [Concomitant]
     Active Substance: ALBUTEROL SULFATE
     Indication: Cough
     Dosage: ONE VIAL 3 TIMES A WEEK

REACTIONS (21)
  - Tardive dyskinesia [Unknown]
  - Neuropsychological symptoms [Not Recovered/Not Resolved]
  - Obsessive-compulsive disorder [Not Recovered/Not Resolved]
  - Paediatric acute-onset neuropsychiatric syndrome [Unknown]
  - Mental disorder [Unknown]
  - Suicide attempt [Not Recovered/Not Resolved]
  - Sleep disorder [Not Recovered/Not Resolved]
  - Tic [Not Recovered/Not Resolved]
  - Suicidal ideation [Not Recovered/Not Resolved]
  - Self-destructive behaviour [Unknown]
  - Anxiety [Unknown]
  - Anger [Unknown]
  - Depression [Unknown]
  - Insomnia [Not Recovered/Not Resolved]
  - Somnolence [Not Recovered/Not Resolved]
  - Hypersensitivity [Unknown]
  - Bruxism [Unknown]
  - Blood calcium increased [Unknown]
  - Vitamin B12 increased [Unknown]
  - Anaemia [Unknown]
  - Affective disorder [Unknown]

NARRATIVE: CASE EVENT DATE: 20160101
